FAERS Safety Report 4349655-0 (Version None)
Quarter: 2004Q2

REPORT INFORMATION
  Report Type: 
  Country: None (occurrence: None)
  Receive Date: 20040426
  Receipt Date: 20030311
  Transmission Date: 20050107
  Serious: Yes (Other)
  Sender: FDA-Public Use
  Company Number: 2003010614

PATIENT
  Sex: Male

DRUGS (2)
  1. ZITHROMAX [Suspect]
     Indication: ILL-DEFINED DISORDER
     Dosage: ORAL
     Route: 048
  2. VALPROATE SODIUM [Concomitant]

REACTIONS (2)
  - CONVULSION [None]
  - NASOPHARYNGITIS [None]
